FAERS Safety Report 16625752 (Version 1)
Quarter: 2019Q3

REPORT INFORMATION
  Report Type: Spontaneous
  Country: US (occurrence: US)
  Receive Date: 20190724
  Receipt Date: 20190724
  Transmission Date: 20191004
  Serious: No
  Sender: FDA-Public Use
  Company Number: None

PATIENT
  Age: 60 Year
  Sex: Female
  Weight: 90 kg

DRUGS (7)
  1. NORMAL SALINE [Concomitant]
     Active Substance: SODIUM CHLORIDE
     Dates: start: 20190723
  2. HEPARIN FLUSH [Concomitant]
     Active Substance: HEPARIN SODIUM
     Dates: start: 20190723
  3. DIPHENHYDRAMINE IV [Concomitant]
     Dates: start: 20190723
  4. ACETAMINOPHEN PO [Concomitant]
     Dates: start: 20190723
  5. PROMETHAZINE PO [Concomitant]
     Dates: start: 20190723
  6. ONDANSETRON IV [Concomitant]
     Dates: start: 20190723
  7. PRIVIGEN [Suspect]
     Active Substance: HUMAN IMMUNOGLOBULIN G
     Indication: MYASTHENIA GRAVIS
     Dosage: ?          OTHER FREQUENCY:DAILY X 2 DAYS Q4W;?
     Route: 041
     Dates: start: 20190723, end: 20190724

REACTIONS (2)
  - Nausea [None]
  - Vomiting [None]

NARRATIVE: CASE EVENT DATE: 20190724
